FAERS Safety Report 18186517 (Version 1)
Quarter: 2020Q3

REPORT INFORMATION
  Report Type: Spontaneous
  Country: FR (occurrence: FR)
  Receive Date: 20200824
  Receipt Date: 20200824
  Transmission Date: 20201103
  Serious: Yes (Other)
  Sender: FDA-Public Use
  Company Number: FR-ACCORD-196810

PATIENT
  Age: 62 Year
  Sex: Female
  Weight: 68 kg

DRUGS (4)
  1. ONTRUZANT [Suspect]
     Active Substance: TRASTUZUMAB-DTTB
     Indication: BREAST CANCER
     Dosage: STRENGTH: 150 MG
     Route: 042
     Dates: start: 20200421, end: 20200602
  2. DOCETAXEL ACCORD [Suspect]
     Active Substance: DOCETAXEL
     Indication: BREAST CANCER
     Dosage: STRENGTH: 160 MG / 8 ML
     Route: 042
     Dates: start: 20200420, end: 20200602
  3. ONDANSETRON [Concomitant]
     Active Substance: ONDANSETRON
  4. PELMEG [Suspect]
     Active Substance: PEGFILGRASTIM
     Indication: NEUTROPENIA
     Route: 058
     Dates: start: 20200422

REACTIONS (3)
  - Back pain [Recovered/Resolved]
  - Condition aggravated [Recovered/Resolved]
  - Arthralgia [Recovered/Resolved]

NARRATIVE: CASE EVENT DATE: 20200423
